FAERS Safety Report 9107615 (Version 3)
Quarter: 2013Q2

REPORT INFORMATION
  Report Type: Spontaneous
  Country: US (occurrence: US)
  Receive Date: 20130221
  Receipt Date: 20130603
  Transmission Date: 20140414
  Serious: No
  Sender: FDA-Public Use
  Company Number: US-PFIZER INC-2012193287

PATIENT
  Sex: Male

DRUGS (3)
  1. ARICEPT [Suspect]
     Dosage: UNK
  2. LYRICA [Suspect]
     Dosage: 50 MG, UNK
  3. NEURONTIN [Suspect]
     Dosage: 300 MG, UNK

REACTIONS (3)
  - Skin lesion [Unknown]
  - Facial pain [Unknown]
  - Pain [Not Recovered/Not Resolved]
